FAERS Safety Report 13253979 (Version 1)
Quarter: 2017Q1

REPORT INFORMATION
  Report Type: Report from Study
  Country: NL (occurrence: NL)
  Receive Date: 20170220
  Receipt Date: 20170220
  Transmission Date: 20170428
  Serious: Yes (Hospitalization)
  Sender: FDA-Public Use
  Company Number: NL-AMGEN-NLDSL2017025667

PATIENT
  Age: 62 Year
  Sex: Male

DRUGS (1)
  1. ARANESP [Suspect]
     Active Substance: DARBEPOETIN ALFA
     Indication: NEPHROGENIC ANAEMIA
     Dosage: 40 MUG, 100MCG/ML 0,4ML()Q2WK
     Route: 058

REACTIONS (2)
  - Blood count abnormal [Unknown]
  - Sense of oppression [Unknown]

NARRATIVE: CASE EVENT DATE: 20170210
